FAERS Safety Report 6076183-7 (Version None)
Quarter: 2009Q1

REPORT INFORMATION
  Report Type: 
  Country: None (occurrence: None)
  Receive Date: 20090212
  Receipt Date: 20090204
  Transmission Date: 20090719
  Serious: Yes (Hospitalization)
  Sender: FDA-Public Use
  Company Number: DE-ABBOTT-09P-062-0500082-00

PATIENT
  Sex: Female

DRUGS (2)
  1. ENANTONE-GYN MONATSDEPOT [Suspect]
     Indication: ENDOMETRIOSIS
     Route: 058
     Dates: start: 20081201
  2. MENOTROPINS [Concomitant]
     Indication: ASSISTED FERTILISATION
     Route: 030
     Dates: start: 20081201

REACTIONS (1)
  - HYPERSENSITIVITY [None]
